FAERS Safety Report 10621276 (Version 2)
Quarter: 2014Q4

REPORT INFORMATION
  Report Type: Spontaneous
  Country: US (occurrence: US)
  Receive Date: 20141203
  Receipt Date: 20141203
  Transmission Date: 20150529
  Serious: Yes (Other)
  Sender: FDA-Public Use
  Company Number: US-BRISTOL-MYERS SQUIBB COMPANY-21583083

PATIENT
  Age: 63 Year
  Sex: Male

DRUGS (4)
  1. SPRYCEL [Suspect]
     Active Substance: DASATINIB
  2. ADVAIR HFA [Concomitant]
     Active Substance: FLUTICASONE PROPIONATE\SALMETEROL XINAFOATE
  3. PROCRIT [Concomitant]
     Active Substance: ERYTHROPOIETIN
  4. VENTOLIN [Concomitant]
     Active Substance: ALBUTEROL SULFATE

REACTIONS (9)
  - White blood cell count decreased [Unknown]
  - Anxiety [Unknown]
  - Diarrhoea [Unknown]
  - Chills [Unknown]
  - Hyperhidrosis [Unknown]
  - Interstitial lung disease [Unknown]
  - Immune system disorder [Unknown]
  - Skin cancer [Unknown]
  - Influenza like illness [Unknown]
